FAERS Safety Report 6050683-8 (Version None)
Quarter: 2009Q1

REPORT INFORMATION
  Report Type: 
  Country: None (occurrence: None)
  Receive Date: 20090121
  Receipt Date: 20090102
  Transmission Date: 20090719
  Serious: Yes (Other)
  Sender: FDA-Public Use
  Company Number: 8040643

PATIENT
  Age: 66 Year
  Sex: Female
  Weight: 81 kg

DRUGS (5)
  1. KEPPRA [Suspect]
     Indication: EPILEPSY
     Dosage: 1250 MG /D PO
     Route: 048
     Dates: start: 20081106, end: 20080101
  2. KEPPRA [Suspect]
     Indication: EPILEPSY
     Dosage: 250 MG 2/D PO
     Route: 048
     Dates: start: 20080101
  3. LYRICA [Concomitant]
  4. ARELIX [Concomitant]
  5. DIPIPERON [Concomitant]

REACTIONS (1)
  - HYPOTHERMIA [None]
